FAERS Safety Report 17955908 (Version 2)
Quarter: 2022Q1

REPORT INFORMATION
  Report Type: Spontaneous
  Country: US (occurrence: US)
  Receive Date: 20200629
  Receipt Date: 20220124
  Transmission Date: 20220423
  Serious: Yes (Other)
  Sender: FDA-Public Use
  Company Number: US-PFIZER INC-2020244689

PATIENT
  Age: 47 Year
  Sex: Female

DRUGS (3)
  1. SOMAVERT [Suspect]
     Active Substance: PEGVISOMANT
     Indication: Acromegaly
     Dosage: 20 MG
     Route: 058
     Dates: start: 20190201
  2. SOMAVERT [Suspect]
     Active Substance: PEGVISOMANT
     Indication: Albright^s disease
     Dosage: 20 MG (ONE DOSE OF THERAPY EVERY 3 DAYS)
     Route: 058
     Dates: start: 20200201
  3. SOMAVERT [Suspect]
     Active Substance: PEGVISOMANT
     Indication: Precocious puberty

REACTIONS (10)
  - Hip fracture [Unknown]
  - Arthralgia [Not Recovered/Not Resolved]
  - Injection site bruising [Unknown]
  - Nausea [Not Recovered/Not Resolved]
  - Headache [Not Recovered/Not Resolved]
  - Fatigue [Not Recovered/Not Resolved]
  - Hyperhidrosis [Not Recovered/Not Resolved]
  - Peripheral swelling [Not Recovered/Not Resolved]
  - Intentional product misuse [Unknown]
  - Product dose omission issue [Unknown]
